FAERS Safety Report 12010128 (Version 3)
Quarter: 2016Q1

REPORT INFORMATION
  Report Type: Not Available
  Country: GB (occurrence: GB)
  Receive Date: 20160205
  Receipt Date: 20160318
  Transmission Date: 20160526
  Serious: Yes (Death)
  Sender: FDA-Public Use
  Company Number: GB-BEH-2016058618

PATIENT
  Age: 73 Year
  Sex: Male

DRUGS (20)
  1. CHLORHEXIDINE GLUCONATE. [Concomitant]
     Active Substance: CHLORHEXIDINE GLUCONATE
     Dosage: STRENGTH: 4%
     Route: 061
     Dates: start: 20160117, end: 20160121
  2. MOVICOL [Concomitant]
     Active Substance: POLYETHYLENE GLYCOL 3350\POTASSIUM CHLORIDE\SODIUM BICARBONATE\SODIUM CHLORIDE
     Dates: start: 20160117, end: 20160125
  3. SODIUM CHLORIDE. [Concomitant]
     Active Substance: SODIUM CHLORIDE
     Dosage: STRENGTH: 600MG
     Route: 048
     Dates: start: 20160117, end: 20160125
  4. SANDO-K [Concomitant]
     Active Substance: POTASSIUM BICARBONATE\POTASSIUM CHLORIDE
     Dosage: STRENGTH: 12MMOL
     Route: 048
     Dates: start: 20160117, end: 20160124
  5. ENOXAPARIN [Concomitant]
     Active Substance: ENOXAPARIN
     Route: 058
     Dates: start: 20160117, end: 20160117
  6. GLYCERIN. [Concomitant]
     Active Substance: GLYCERIN
     Dosage: STRENGTH: 4G
     Route: 054
     Dates: start: 20160117, end: 20160125
  7. HEPARIN [Concomitant]
     Active Substance: HEPARIN SODIUM
     Route: 042
     Dates: start: 20160117, end: 20160117
  8. SENNA [Concomitant]
     Active Substance: SENNA LEAF\SENNOSIDES\SENNOSIDES A AND B
     Route: 048
     Dates: start: 20160117, end: 20160124
  9. DOCUSATE SODIUM. [Concomitant]
     Active Substance: DOCUSATE SODIUM
     Dates: start: 20160117, end: 20160125
  10. MAGNESIUM HYDROXIDE. [Concomitant]
     Active Substance: MAGNESIUM HYDROXIDE
     Dates: start: 20160117, end: 20160125
  11. MORPHINE [Concomitant]
     Active Substance: MORPHINE
     Route: 042
     Dates: start: 20160117
  12. ONDANSETRON [Concomitant]
     Active Substance: ONDANSETRON
     Route: 040
     Dates: start: 20160117, end: 20160125
  13. PHENYLEPHRINE [Concomitant]
     Active Substance: PHENYLEPHRINE\PHENYLEPHRINE HYDROCHLORIDE
     Route: 042
     Dates: start: 20160117
  14. MAGNESIUM SULFATE. [Concomitant]
     Active Substance: MAGNESIUM SULFATE
     Route: 042
     Dates: start: 20160117, end: 20160125
  15. NASEPTIN [Concomitant]
     Active Substance: CHLORHEXIDINE HYDROCHLORIDE\NEOMYCIN SULFATE
     Dates: start: 20160117, end: 20160125
  16. PROPOFOL. [Concomitant]
     Active Substance: PROPOFOL
     Route: 042
     Dates: start: 20160117, end: 20160125
  17. PRIVIGEN [Suspect]
     Active Substance: HUMAN IMMUNOGLOBULIN G
     Indication: GUILLAIN-BARRE SYNDROME
     Route: 042
     Dates: start: 20160116, end: 20160117
  18. HEPARIN SODIUM. [Concomitant]
     Active Substance: HEPARIN SODIUM
     Route: 042
     Dates: start: 20160117, end: 20160125
  19. METOCLOPRAMIDE. [Concomitant]
     Active Substance: METOCLOPRAMIDE
     Route: 040
     Dates: start: 20160117, end: 20160118
  20. RANITIDINE [Concomitant]
     Active Substance: RANITIDINE\RANITIDINE HYDROCHLORIDE
     Route: 040
     Dates: start: 20160117, end: 20160119

REACTIONS (2)
  - Cerebral haemorrhage [Fatal]
  - Superior sagittal sinus thrombosis [Fatal]

NARRATIVE: CASE EVENT DATE: 20160116
